FAERS Safety Report 14240946 (Version 7)
Quarter: 2018Q2

REPORT INFORMATION
  Report Type: Report from Study
  Country: US (occurrence: US)
  Receive Date: 20171130
  Receipt Date: 20180425
  Transmission Date: 20180711
  Serious: Yes (Hospitalization)
  Sender: FDA-Public Use
  Company Number: US-ACTELION-A-NJ2017-161136

PATIENT
  Age: 73 Year
  Sex: Female
  Weight: 52.15 kg

DRUGS (5)
  1. DILTIAZEM. [Concomitant]
     Active Substance: DILTIAZEM
  2. TYVASO [Concomitant]
     Active Substance: TREPROSTINIL
  3. ORENITRAM [Suspect]
     Active Substance: TREPROSTINIL
     Indication: PRODUCT USED FOR UNKNOWN INDICATION
     Dosage: 0.5 MG, TID
     Route: 065
     Dates: start: 20171116
  4. OPSUMIT [Suspect]
     Active Substance: MACITENTAN
     Indication: PULMONARY ARTERIAL HYPERTENSION
     Dosage: 10 MG, QD
     Route: 048
  5. ORENITRAM [Suspect]
     Active Substance: TREPROSTINIL
     Dosage: 0.625 MG, UNK
     Route: 065

REACTIONS (25)
  - Flushing [Unknown]
  - Chronic obstructive pulmonary disease [Unknown]
  - Pneumonia [Unknown]
  - Oxygen saturation decreased [Unknown]
  - Anxiety [Unknown]
  - Therapy non-responder [Unknown]
  - Cough [Unknown]
  - Malaise [Unknown]
  - Productive cough [Unknown]
  - Nausea [Unknown]
  - Dyspnoea [Unknown]
  - Rash [Unknown]
  - Nasal discomfort [Unknown]
  - Cyanosis [Unknown]
  - Viral infection [Unknown]
  - Rheumatoid arthritis [Unknown]
  - Diarrhoea [Unknown]
  - Treatment noncompliance [Unknown]
  - Nasal congestion [Unknown]
  - Unevaluable event [Unknown]
  - Nasal dryness [Unknown]
  - Bedridden [Unknown]
  - Chest pain [Unknown]
  - Myalgia [Unknown]
  - Peripheral swelling [Unknown]

NARRATIVE: CASE EVENT DATE: 201710
